FAERS Safety Report 21796789 (Version 3)
Quarter: 2023Q1

REPORT INFORMATION
  Report Type: Spontaneous
  Country: FR (occurrence: FR)
  Receive Date: 20221230
  Receipt Date: 20230211
  Transmission Date: 20230418
  Serious: Yes (Other)
  Sender: FDA-Public Use
  Company Number: FR-ABBVIE-4253660

PATIENT
  Age: 64 Year
  Sex: Female

DRUGS (7)
  1. DEPAKOTE [Suspect]
     Active Substance: DIVALPROEX SODIUM
     Indication: Mania
     Route: 065
     Dates: start: 2016, end: 2022
  2. DEPAKOTE [Suspect]
     Active Substance: DIVALPROEX SODIUM
     Indication: Mania
     Dosage: 750 MG
     Route: 065
  3. DEPAKOTE [Suspect]
     Active Substance: DIVALPROEX SODIUM
     Indication: Mania
     Route: 048
  4. OXAZEPAM [Concomitant]
     Active Substance: OXAZEPAM
     Indication: Product used for unknown indication
  5. TOVIAZ [Concomitant]
     Active Substance: FESOTERODINE FUMARATE
     Indication: Product used for unknown indication
  6. QUETIAPINE [Concomitant]
     Active Substance: QUETIAPINE
     Indication: Product used for unknown indication
  7. DEPAKOTE [Concomitant]
     Active Substance: DIVALPROEX SODIUM
     Indication: Product used for unknown indication
     Dosage: BATCH NUMBER:18332 AND THE EXPIRATION DATE NOVEMBER 2024

REACTIONS (10)
  - Neuropathy peripheral [Unknown]
  - Back pain [Unknown]
  - Muscle spasms [Unknown]
  - Muscle spasms [Unknown]
  - Enuresis [Unknown]
  - Dry skin [Unknown]
  - Condition aggravated [Unknown]
  - Bipolar disorder [Unknown]
  - Delusion [Unknown]
  - Unevaluable event [Unknown]

NARRATIVE: CASE EVENT DATE: 20221223
